FAERS Safety Report 18455636 (Version 1)
Quarter: 2020Q4

REPORT INFORMATION
  Report Type: Other
  Country: US (occurrence: US)
  Receive Date: 20201102
  Receipt Date: 20201102
  Transmission Date: 20210114
  Serious: Yes (Other)
  Sender: FDA-Public Use
  Company Number: US-ROCHE-2702645

PATIENT

DRUGS (2)
  1. TOCILIZUMAB. [Suspect]
     Active Substance: TOCILIZUMAB
     Indication: COVID-19
     Route: 011
  2. TOCILIZUMAB. [Suspect]
     Active Substance: TOCILIZUMAB
     Indication: COVID-19
     Route: 058

REACTIONS (18)
  - Infection [Unknown]
  - Arrhythmia [Unknown]
  - Cerebrovascular accident [Unknown]
  - Thrombosis [Unknown]
  - Urosepsis [Unknown]
  - Atrial fibrillation [Unknown]
  - Aspartate aminotransferase increased [Unknown]
  - Pneumonia [Unknown]
  - Ventricular tachycardia [Unknown]
  - Deep vein thrombosis [Unknown]
  - Atrial flutter [Unknown]
  - Intentional product use issue [Unknown]
  - Off label use [Unknown]
  - Bacteraemia [Unknown]
  - Ventricular fibrillation [Unknown]
  - Pulmonary embolism [Unknown]
  - Alanine aminotransferase increased [Unknown]
  - Biliary sepsis [Unknown]
